FAERS Safety Report 7419627-8 (Version None)
Quarter: 2011Q1

REPORT INFORMATION
  Report Type: 
  Country: None (occurrence: None)
  Receive Date: 20110302
  Receipt Date: 20101214
  Transmission Date: 20110831
  Serious: No
  Sender: FDA-Public Use
  Company Number: 019968

PATIENT
  Sex: Female
  Weight: 59 kg

DRUGS (1)
  1. CIMZIA [Suspect]
     Indication: CROHN'S DISEASE
     Dosage: (2 SYRINGES MONTHLY SUBCUTANEOUS)
     Route: 058
     Dates: start: 20100801

REACTIONS (4)
  - PYREXIA [None]
  - EYE IRRITATION [None]
  - DRUG INEFFECTIVE [None]
  - CHILLS [None]
